FAERS Safety Report 23388365 (Version 4)
Quarter: 2024Q1

REPORT INFORMATION
  Report Type: Spontaneous
  Country: US (occurrence: US)
  Receive Date: 20240110
  Receipt Date: 20240226
  Transmission Date: 20240409
  Serious: No
  Sender: FDA-Public Use
  Company Number: US-SA-SAC20240109000856

PATIENT
  Age: 8 Year
  Sex: Male

DRUGS (3)
  1. NEXVIAZYME [Suspect]
     Active Substance: AVALGLUCOSIDASE ALFA-NGPT
     Indication: Glycogen storage disease type II
     Dosage: 1200 MG(40MG/KG), QOW
     Route: 042
     Dates: start: 202307
  2. NEXVIAZYME [Suspect]
     Active Substance: AVALGLUCOSIDASE ALFA-NGPT
     Dosage: 100 MG, QOW
     Route: 042
     Dates: start: 2023
  3. NEXVIAZYME [Suspect]
     Active Substance: AVALGLUCOSIDASE ALFA-NGPT
     Dosage: 1200 MG(40MG/KG), QOW
     Route: 042
     Dates: start: 20240114

REACTIONS (6)
  - Anxiety [Unknown]
  - Decreased appetite [Unknown]
  - Dysstasia [Unknown]
  - Fatigue [Recovering/Resolving]
  - Pain in extremity [Unknown]
  - Asthenia [Unknown]
